FAERS Safety Report 5661912-4 (Version None)
Quarter: 2008Q1

REPORT INFORMATION
  Report Type: 
  Country: None (occurrence: None)
  Receive Date: 20080201
  Receipt Date: 20060813
  Transmission Date: 20080703
  Serious: No
  Sender: FDA-Public Use
  Company Number: 20084632

PATIENT
  Sex: Female

DRUGS (2)
  1. LIORESAL [Suspect]
     Indication: MUSCLE SPASTICITY
     Dosage: DAILY, INTRATHECAL
     Route: 037
  2. ORAL BCLOFEN [Concomitant]

REACTIONS (4)
  - CHILLS [None]
  - DRUG INEFFECTIVE [None]
  - HYPERHIDROSIS [None]
  - HYPERTONIA [None]
